FAERS Safety Report 7953963-1 (Version None)
Quarter: 2011Q4

REPORT INFORMATION
  Report Type: 
  Country: None (occurrence: None)
  Receive Date: 20111202
  Receipt Date: 20111129
  Transmission Date: 20120403
  Serious: Yes (Death, Hospitalization)
  Sender: FDA-Public Use
  Company Number: US-B.I. PHARMACEUTICALS,INC./RIDGEFIELD-2011-BP-20386BP

PATIENT
  Sex: Male

DRUGS (12)
  1. LIPITOR [Concomitant]
     Indication: DYSLIPIDAEMIA
     Dosage: 80 MG
     Route: 048
  2. TOPROL-XL [Concomitant]
     Indication: HYPERTENSION
     Dosage: 50 MG
     Route: 048
  3. PLAVIX [Concomitant]
     Dosage: 75 MG
     Route: 048
  4. ADVAIR DISKUS 100/50 [Concomitant]
     Indication: CHRONIC OBSTRUCTIVE PULMONARY DISEASE
     Dosage: 250/50 INH, 1 PUFF BID
     Route: 055
  5. ENTOCORT EC [Concomitant]
     Indication: CHRONIC OBSTRUCTIVE PULMONARY DISEASE
     Dosage: 3 MG
  6. TRAZODONE HCL [Concomitant]
     Dosage: 300 MG
     Route: 048
  7. SPIRIVA [Suspect]
     Indication: CHRONIC OBSTRUCTIVE PULMONARY DISEASE
     Dosage: 18 MCG
     Route: 055
  8. PROTONIX [Concomitant]
     Indication: GASTROOESOPHAGEAL REFLUX DISEASE
     Dosage: 80 MG
     Route: 048
  9. SINGULAIR [Concomitant]
     Dosage: 10 MG
     Route: 048
  10. VENTOLIN [Concomitant]
     Indication: CHRONIC OBSTRUCTIVE PULMONARY DISEASE
     Dosage: INH , PRN
     Route: 055
  11. IMDUR [Concomitant]
     Dosage: 30 MG
     Route: 048
  12. ZOLOFT [Concomitant]
     Indication: DEPRESSION
     Dosage: 200 MG
     Route: 048

REACTIONS (2)
  - PNEUMONIA [None]
  - ACUTE MYELOID LEUKAEMIA [None]
